FAERS Safety Report 16701404 (Version 1)
Quarter: 2019Q3

REPORT INFORMATION
  Report Type: Other
  Country: DE (occurrence: DE)
  Receive Date: 20190814
  Receipt Date: 20190814
  Transmission Date: 20191004
  Serious: Yes (Hospitalization)
  Sender: FDA-Public Use
  Company Number: DE-GLENMARK PHARMACEUTICALS-2019GMK042559

PATIENT

DRUGS (7)
  1. TAMSULOSIN [Concomitant]
     Active Substance: TAMSULOSIN
     Indication: PRODUCT USED FOR UNKNOWN INDICATION
     Dosage: UNK,0.4 MG, 1-0-0, TABLETTEN
     Route: 048
  2. ACETYLSALICYLSAEURE [Concomitant]
     Active Substance: ASPIRIN
     Indication: PRODUCT USED FOR UNKNOWN INDICATION
     Dosage: UNK,100 MG, 1-0-0, TABLETTEN
     Route: 048
  3. ENOXAPARIN [Concomitant]
     Active Substance: ENOXAPARIN
     Indication: PRODUCT USED FOR UNKNOWN INDICATION
     Dosage: UNK, 0.4 ML, 1-0-0, INJEKTIONS-/INFUSIONSL?SUNG
     Route: 058
  4. MACROGOL [Concomitant]
     Active Substance: POLYETHYLENE GLYCOLS
     Indication: PRODUCT USED FOR UNKNOWN INDICATION
     Dosage: UNK,0-1-0, PULVER
     Route: 048
  5. TELMISARTAN. [Suspect]
     Active Substance: TELMISARTAN
     Indication: PRODUCT USED FOR UNKNOWN INDICATION
     Dosage: UNK,40 MG, 0-0-1; SEIT 8 TAGEN PAUSIERT, TABLETTEN
     Route: 048
  6. FINASTERID [Concomitant]
     Active Substance: FINASTERIDE
     Indication: PRODUCT USED FOR UNKNOWN INDICATION
     Dosage: UNK,5 MG, 1-0-0, TABLETTEN
     Route: 048
  7. LEVOTHYROXINUM NATRICUM [Concomitant]
     Indication: PRODUCT USED FOR UNKNOWN INDICATION
     Dosage: UNK,125 ?G, 1-0-0, TABLETTEN
     Route: 048

REACTIONS (4)
  - Restlessness [Unknown]
  - Tremor [Unknown]
  - Labile blood pressure [Unknown]
  - Headache [Unknown]
